FAERS Safety Report 4589030-7 (Version None)
Quarter: 2005Q1

REPORT INFORMATION
  Report Type: 
  Country: None (occurrence: None)
  Receive Date: 20050125
  Receipt Date: 20041018
  Transmission Date: 20050727
  Serious: No
  Sender: FDA-Public Use
  Company Number: USA041081240

PATIENT
  Age: 74 Year
  Sex: Female

DRUGS (3)
  1. FORTEO [Suspect]
     Indication: BONE DENSITY DECREASED
     Dosage: 20 UG/1 DAY
     Dates: start: 20040701
  2. VIACTIV [Concomitant]
  3. MIACALCIN [Concomitant]

REACTIONS (4)
  - ALOPECIA [None]
  - MUSCLE SPASMS [None]
  - NOCTURIA [None]
  - URINARY TRACT INFECTION [None]
